FAERS Safety Report 11047260 (Version 1)
Quarter: 2015Q2

REPORT INFORMATION
  Report Type: Spontaneous
  Country: US (occurrence: US)
  Receive Date: 20150420
  Receipt Date: 20150420
  Transmission Date: 20150821
  Serious: No
  Sender: FDA-Public Use
  Company Number: US-ASTRAZENECA-2015SE33801

PATIENT

DRUGS (1)
  1. BYDUREON [Suspect]
     Active Substance: EXENATIDE
     Route: 065

REACTIONS (3)
  - Paraesthesia [Recovered/Resolved]
  - Nodule [Recovered/Resolved]
  - Injection site erythema [Recovered/Resolved]
